FAERS Safety Report 8604679-X (Version None)
Quarter: 2012Q3

REPORT INFORMATION
  Report Type: 
  Country: None (occurrence: None)
  Receive Date: 20120820
  Receipt Date: 20120815
  Transmission Date: 20120928
  Serious: Yes (Death, Hospitalization, Other)
  Sender: FDA-Public Use
  Company Number: PHHY2012BR066845

PATIENT
  Age: 77 Year
  Sex: Female

DRUGS (3)
  1. CHEMOTHERAPEUTICS [Concomitant]
     Indication: LUNG NEOPLASM MALIGNANT
  2. DIOVAN HCT [Suspect]
     Indication: HYPERTENSION
     Dosage: 1 DF IN MORNING
  3. CHEMOTHERAPEUTICS [Concomitant]
     Indication: ABDOMINAL NEOPLASM

REACTIONS (9)
  - FLUID RETENTION [None]
  - METASTASES TO LUNG [None]
  - ABDOMINAL NEOPLASM [None]
  - METASTASES TO KIDNEY [None]
  - HYPOGLYCAEMIA [None]
  - ASTHENIA [None]
  - PNEUMONIA [None]
  - SYNCOPE [None]
  - MALAISE [None]
